FAERS Safety Report 8613421-8 (Version None)
Quarter: 2012Q3

REPORT INFORMATION
  Report Type: 
  Country: None (occurrence: None)
  Receive Date: 20120822
  Receipt Date: 20120327
  Transmission Date: 20120928
  Serious: Yes (Hospitalization, Other)
  Sender: FDA-Public Use
  Company Number: JP-009507513-1208JPN006834

PATIENT

DRUGS (14)
  1. REBETOL [Suspect]
     Indication: HEPATITIS C
     Route: 048
     Dates: start: 20120201, end: 20120214
  2. TELAVIC [Suspect]
     Indication: HEPATITIS C
     Route: 048
     Dates: start: 20120201, end: 20120228
  3. [THERAPY UNSPECIFIED] [Concomitant]
     Indication: INSOMNIA
     Route: 048
  4. REBETOL [Suspect]
     Route: 048
     Dates: start: 20120215, end: 20120307
  5. TELAVIC [Suspect]
     Route: 048
     Dates: start: 20120229, end: 20120307
  6. PEG-INTRON [Suspect]
     Indication: HEPATITIS C
     Dosage: 1.5MCG/KG/WEEK
     Route: 058
     Dates: start: 20120201, end: 20120222
  7. TELAVIC [Suspect]
     Route: 048
  8. PEG-INTRON [Suspect]
     Dosage: 1.0MCG/KG/WEEK
     Route: 058
     Dates: start: 20120229, end: 20120229
  9. [THERAPY UNSPECIFIED] [Concomitant]
     Route: 048
     Dates: end: 20120702
  10. PEG-INTRON [Suspect]
     Dosage: 0MCG/KG
     Route: 058
  11. REBETOL [Suspect]
     Route: 048
  12. MILMAG [Concomitant]
     Indication: CONSTIPATION
     Route: 048
     Dates: end: 20120604
  13. SENNA-MINT WAF [Concomitant]
     Indication: CONSTIPATION
     Dosage: 2T/DAY, AS NEEDED.
     Route: 048
  14. [THERAPY UNSPECIFIED] [Concomitant]
     Route: 048

REACTIONS (8)
  - RASH [None]
  - INSOMNIA [None]
  - MALAISE [None]
  - DEPRESSION [None]
  - CONSTIPATION [None]
  - ANAEMIA [None]
  - DECREASED APPETITE [None]
  - NAUSEA [None]
